FAERS Safety Report 20091963 (Version 1)
Quarter: 2021Q4

REPORT INFORMATION
  Report Type: Spontaneous
  Country: BY (occurrence: BY)
  Receive Date: 20211119
  Receipt Date: 20211119
  Transmission Date: 20220304
  Serious: Yes (Other)
  Sender: FDA-Public Use
  Company Number: BY-ASTELLAS-2021US043500

PATIENT
  Age: 70 Year
  Sex: Male

DRUGS (3)
  1. RIBOMUSTIN [Suspect]
     Active Substance: BENDAMUSTINE HYDROCHLORIDE
     Indication: Extranodal marginal zone B-cell lymphoma (MALT type)
     Route: 042
     Dates: start: 20210810, end: 20210811
  2. RIBOMUSTIN [Suspect]
     Active Substance: BENDAMUSTINE HYDROCHLORIDE
     Route: 042
  3. RITUXIMAB [Concomitant]
     Active Substance: RITUXIMAB
     Indication: Product used for unknown indication
     Route: 065
     Dates: start: 20210810

REACTIONS (2)
  - Haematotoxicity [Not Recovered/Not Resolved]
  - Quadriparesis [Not Recovered/Not Resolved]

NARRATIVE: CASE EVENT DATE: 20210810
